FAERS Safety Report 6000722-5 (Version None)
Quarter: 2008Q4

REPORT INFORMATION
  Report Type: 
  Country: None (occurrence: None)
  Receive Date: 20081211
  Receipt Date: 20081202
  Transmission Date: 20090506
  Serious: Yes (Hospitalization)
  Sender: FDA-Public Use
  Company Number: 2005JP001088

PATIENT
  Age: 13 Year
  Sex: Male

DRUGS (9)
  1. PROTOPIC [Suspect]
     Dosage: 0.03 %, TOPICAL
     Route: 061
     Dates: end: 20070317
  2. PALDES (CLOBETASONE BUTYRATE) OINTMENT [Concomitant]
  3. VOALLA (DEXAMETHASONE VALERATE) OINTMENT [Concomitant]
  4. WHITE PETROLEUM (PETROLATUM) OINTMENT [Concomitant]
  5. HIRUDOID (HEPARINOID) OINTMENT [Concomitant]
  6. ALLEGRA (FEXOFENADINE HYDROCHLORIDE) TABLET [Concomitant]
  7. LIDOMEX (PREDNISOLONE VALEROACETATE) CREAM [Concomitant]
  8. DIFLUPREDNATE (DIFLUPREDNATE) CREAM [Concomitant]
  9. ANTEBATE (BETAMETHASONE BUTYRATE PROPIONATE) OINTMENT [Concomitant]

REACTIONS (3)
  - APPLICATION SITE WARMTH [None]
  - INFECTED EPIDERMAL CYST [None]
  - KAPOSI'S VARICELLIFORM ERUPTION [None]
